FAERS Safety Report 5756125-1 (Version None)
Quarter: 2008Q2

REPORT INFORMATION
  Report Type: 
  Country: None (occurrence: None)
  Receive Date: 20080602
  Receipt Date: 20080523
  Transmission Date: 20081010
  Serious: Yes (Other)
  Sender: FDA-Public Use
  Company Number: US-ABBOTT-08P-163-0448320-00

PATIENT
  Sex: Female
  Weight: 49.94 kg

DRUGS (34)
  1. SYNTHROID [Interacting]
     Indication: HYPOTHYROIDISM
     Route: 048
     Dates: start: 19650101
  2. SYNTHROID [Interacting]
     Indication: THYROID HORMONE REPLACEMENT THERAPY
     Dates: start: 19930106, end: 19930313
  3. SYNTHROID [Interacting]
     Route: 048
     Dates: start: 19930413
  4. SYNTHROID [Interacting]
     Dates: start: 19750101
  5. SYNTHROID [Interacting]
     Dates: start: 19750101
  6. SYNTHROID [Interacting]
     Dates: start: 19980101
  7. SYNTHROID [Interacting]
     Dates: start: 19790601
  8. SYNTHROID [Interacting]
     Dates: start: 19930101
  9. SYNTHROID [Interacting]
  10. SYNTHROID [Interacting]
  11. SYNTHROID [Interacting]
  12. PHENYTOIN [Interacting]
     Indication: GRAND MAL CONVULSION
     Route: 048
     Dates: start: 19550101
  13. PHENYTOIN [Interacting]
     Indication: EPILEPSY
     Route: 048
     Dates: start: 19930106, end: 19930313
  14. PHENYTOIN [Interacting]
     Dates: start: 19930313, end: 19960101
  15. PHENYTOIN [Interacting]
     Dates: start: 19960101
  16. PHENYTOIN [Interacting]
  17. PHENYTOIN [Interacting]
     Dates: start: 19710101
  18. PHENYTOIN [Interacting]
  19. PHENYTOIN [Interacting]
     Dates: start: 19750101
  20. PHENYTOIN [Interacting]
     Dates: start: 19750101
  21. PHENYTOIN [Interacting]
     Dates: start: 19750101
  22. PHENYTOIN [Interacting]
     Dates: start: 19780101
  23. PHENYTOIN [Interacting]
  24. PHENYTOIN [Interacting]
     Dates: start: 19820101
  25. PHENYTOIN [Interacting]
     Dates: start: 19820101
  26. PHENYTOIN [Interacting]
  27. PHENYTOIN [Interacting]
  28. GABAPENTIN [Suspect]
     Indication: CONVULSION
     Route: 048
     Dates: start: 20010226, end: 20010301
  29. CETIRIZINE HYDROCHLORIDE [Suspect]
     Indication: URTICARIA
     Route: 048
     Dates: start: 20030325, end: 20030403
  30. CETIRIZINE HYDROCHLORIDE [Suspect]
     Dates: start: 20030404
  31. COLD-EEZE [Suspect]
     Indication: MULTIPLE ALLERGIES
     Dates: end: 19990101
  32. COLD-EEZE [Suspect]
     Dates: start: 19990101
  33. CENTRUM SILVER [Concomitant]
     Indication: VITAMIN SUPPLEMENTATION
     Route: 048
  34. TUMS [Concomitant]
     Indication: MINERAL SUPPLEMENTATION
     Route: 048

REACTIONS (32)
  - AMNESIA [None]
  - ANTICONVULSANT DRUG LEVEL DECREASED [None]
  - AURICULAR SWELLING [None]
  - BALANCE DISORDER [None]
  - BLOOD THYROID STIMULATING HORMONE INCREASED [None]
  - BODY HEIGHT DECREASED [None]
  - BURNING SENSATION [None]
  - CONVULSION [None]
  - DIARRHOEA [None]
  - DRUG INTERACTION [None]
  - EAR PAIN [None]
  - EYE IRRITATION [None]
  - GENERALISED OEDEMA [None]
  - HAIR GROWTH ABNORMAL [None]
  - HEADACHE [None]
  - HYPERSENSITIVITY [None]
  - HYPOAESTHESIA [None]
  - HYPOTHYROIDISM [None]
  - INSOMNIA [None]
  - LOCAL SWELLING [None]
  - MOUTH HAEMORRHAGE [None]
  - MUSCULAR WEAKNESS [None]
  - OEDEMA PERIPHERAL [None]
  - ORAL DISCOMFORT [None]
  - PRURITUS GENERALISED [None]
  - SLEEP DISORDER [None]
  - SOMNOLENCE [None]
  - SWELLING FACE [None]
  - TREMOR [None]
  - URTICARIA [None]
  - VISION BLURRED [None]
  - WEIGHT DECREASED [None]
